FAERS Safety Report 8433050-9 (Version None)
Quarter: 2012Q2

REPORT INFORMATION
  Report Type: 
  Country: None (occurrence: None)
  Receive Date: 20120323
  Receipt Date: 20110708
  Transmission Date: 20120825
  Serious: Yes (Hospitalization)
  Sender: FDA-Public Use
  Company Number: 163-21880-11060325

PATIENT
  Age: 58 Year
  Sex: Female

DRUGS (14)
  1. VYTORIN [Concomitant]
  2. REVLIMID [Suspect]
     Indication: MULTIPLE MYELOMA
     Dosage: SEE IMAGE
     Route: 048
     Dates: start: 20101101, end: 20110509
  3. REVLIMID [Suspect]
     Indication: MULTIPLE MYELOMA
     Dosage: SEE IMAGE
     Route: 048
     Dates: start: 20090901
  4. REVLIMID [Suspect]
     Indication: MULTIPLE MYELOMA
     Dosage: SEE IMAGE
     Route: 048
     Dates: start: 20110515
  5. REVLIMID [Suspect]
     Indication: MULTIPLE MYELOMA
     Dosage: SEE IMAGE
     Route: 048
     Dates: start: 20100101
  6. ZOMETA [Concomitant]
  7. GABAPENTIN [Concomitant]
  8. OSCAL (CALCIUM CARBONATE) [Concomitant]
  9. SIMVASTATIN [Concomitant]
  10. LANTUS [Concomitant]
  11. RAMIPRIL [Concomitant]
  12. COUMADIN [Concomitant]
  13. LOTREL [Concomitant]
  14. ZYRTEC [Concomitant]

REACTIONS (3)
  - COLONIC OBSTRUCTION [None]
  - DIARRHOEA [None]
  - PNEUMONIA [None]
